FAERS Safety Report 17077595 (Version 1)
Quarter: 2019Q4

REPORT INFORMATION
  Report Type: Spontaneous
  Country: US (occurrence: US)
  Receive Date: 20191126
  Receipt Date: 20191126
  Transmission Date: 20200122
  Serious: Yes (Other)
  Sender: FDA-Public Use
  Company Number: US-TEVA-2019-US-1142723

PATIENT
  Age: 6 Decade
  Sex: Male

DRUGS (6)
  1. COLCHICINE. [Suspect]
     Active Substance: COLCHICINE
     Indication: DERMATITIS HERPETIFORMIS
  2. SULFASALAZINE. [Suspect]
     Active Substance: SULFASALAZINE
     Indication: COELIAC DISEASE
     Dosage: 1000-1500MG
     Route: 065
  3. SULFASALAZINE. [Suspect]
     Active Substance: SULFASALAZINE
     Indication: DERMATITIS HERPETIFORMIS
  4. COLCHICINE. [Suspect]
     Active Substance: COLCHICINE
     Indication: COELIAC DISEASE
     Dosage: 1.2 MILLIGRAM DAILY;
     Route: 065
  5. DAPSONE. [Suspect]
     Active Substance: DAPSONE
     Indication: COELIAC DISEASE
     Route: 065
  6. DAPSONE. [Suspect]
     Active Substance: DAPSONE
     Indication: DERMATITIS HERPETIFORMIS

REACTIONS (3)
  - Vitiligo [Unknown]
  - Neuropathy peripheral [Unknown]
  - Drug ineffective [Unknown]
